FAERS Safety Report 19196517 (Version 3)
Quarter: 2021Q2

REPORT INFORMATION
  Report Type: Spontaneous
  Country: BR (occurrence: BR)
  Receive Date: 20210429
  Receipt Date: 20210608
  Transmission Date: 20210717
  Serious: Yes (Hospitalization, Other)
  Sender: FDA-Public Use
  Company Number: BR-TAKEDA-2021TUS025819

PATIENT
  Age: 41 Year
  Sex: Female
  Weight: 74 kg

DRUGS (5)
  1. VENVANSE [Suspect]
     Active Substance: LISDEXAMFETAMINE DIMESYLATE
     Indication: ANXIETY
  2. TOZINAMERAN. [Suspect]
     Active Substance: TOZINAMERAN
     Dosage: FORTH DOSE
     Route: 030
     Dates: start: 20210215
  3. ADENOSINE. [Concomitant]
     Active Substance: ADENOSINE
     Dosage: 6 MILLIGRAM, PRN
     Route: 042
  4. TOZINAMERAN. [Suspect]
     Active Substance: TOZINAMERAN
     Indication: COVID-19 IMMUNISATION
     Dosage: 3RD DOSE
     Route: 030
     Dates: start: 20210123, end: 20210123
  5. VENVANSE [Suspect]
     Active Substance: LISDEXAMFETAMINE DIMESYLATE
     Indication: ATTENTION DEFICIT HYPERACTIVITY DISORDER
     Dosage: 50 MILLIGRAM, QD
     Route: 048
     Dates: start: 20201215, end: 20210213

REACTIONS (1)
  - Supraventricular tachycardia [Recovered/Resolved]

NARRATIVE: CASE EVENT DATE: 20210211
